FAERS Safety Report 10432642 (Version 1)
Quarter: 2014Q3

REPORT INFORMATION
  Report Type: Spontaneous
  Country: US (occurrence: US)
  Receive Date: 20140905
  Receipt Date: 20140905
  Transmission Date: 20150326
  Serious: Yes (Hospitalization, Other)
  Sender: FDA-Public Use
  Company Number: US-SUN PHARMACEUTICAL INDUSTRIES LTD-2014SUN01996

PATIENT

DRUGS (7)
  1. VICTOZA [Concomitant]
     Active Substance: LIRAGLUTIDE
     Dosage: UNK
  2. TESTOSTERONE CYPIONATE INJECTION; 200 MG/ML [Suspect]
     Active Substance: TESTOSTERONE CYPIONATE
     Indication: BLOOD TESTOSTERONE DECREASED
     Dosage: 1 ML EVERY 10 DAYS, OVER A YEAR
     Route: 030
  3. ANTIALLERGICS [Concomitant]
     Indication: HYPERSENSITIVITY
  4. ANTIHYPERTENSIVES [Concomitant]
     Active Substance: UNSPECIFIED INGREDIENT
     Indication: HYPERTENSION
  5. INSULIN [Concomitant]
     Active Substance: INSULIN NOS
  6. TESTOSTERONE  CYPIONATE INJECTION; 200 MG/ML [Suspect]
     Active Substance: TESTOSTERONE CYPIONATE
     Dosage: 1 ML, EVERY TEN DAYS
     Route: 030
     Dates: start: 201407
  7. CRESTOR [Concomitant]
     Active Substance: ROSUVASTATIN CALCIUM

REACTIONS (5)
  - Tremor [Recovered/Resolved]
  - Pyrexia [Recovered/Resolved]
  - Product deposit [Unknown]
  - Feeling abnormal [Recovered/Resolved]
  - Pyrexia [None]

NARRATIVE: CASE EVENT DATE: 201407
